FAERS Safety Report 19723680 (Version 5)
Quarter: 2021Q3

REPORT INFORMATION
  Report Type: Report from Study
  Country: US (occurrence: US)
  Receive Date: 20210819
  Receipt Date: 20210915
  Transmission Date: 20211014
  Serious: Yes (Hospitalization)
  Sender: FDA-Public Use
  Company Number: US-ROCHE-2888922

PATIENT
  Age: 18 Year
  Sex: Male
  Weight: 64.8 kg

DRUGS (26)
  1. SENNA [Concomitant]
     Active Substance: SENNA LEAF\SENNOSIDES\SENNOSIDES A AND B
     Route: 048
     Dates: start: 20210818, end: 20210818
  2. DOCUSATE SODIUM. [Concomitant]
     Active Substance: DOCUSATE SODIUM
     Indication: CONSTIPATION
     Route: 048
     Dates: start: 202106, end: 202106
  3. DEXTROSE;POTASSIUM CHLORIDE;SODIUM CHLORIDE [Concomitant]
     Dosage: 91.3 OTHER
     Route: 042
     Dates: start: 20210816
  4. VERSED [Concomitant]
     Active Substance: MIDAZOLAM HYDROCHLORIDE
     Dates: start: 20210817, end: 20210818
  5. GOLYTELY [Concomitant]
     Active Substance: POLYETHYLENE GLYCOL 3350\POTASSIUM CHLORIDE\SODIUM BICARBONATE\SODIUM CHLORIDE\SODIUM SULFATE
     Dosage: 297 OTHER
     Dates: start: 20210818, end: 20210819
  6. CEFTRIAXONE. [Concomitant]
     Active Substance: CEFTRIAXONE
     Indication: GONORRHOEA
     Route: 042
     Dates: start: 20210818, end: 20210818
  7. OCRELIZUMAB. [Suspect]
     Active Substance: OCRELIZUMAB
     Indication: RELAPSING-REMITTING MULTIPLE SCLEROSIS
     Dosage: TWO INFUSIONS (300 MG) OF HALF THE DOSE 14 DAYS APART FOR THE FIRST DOSE, THEN SUBSEQUENT DOSES AS A
     Route: 042
     Dates: start: 20200629
  8. EXCEDRIN (UNITED STATES) [Concomitant]
     Indication: HEADACHE
     Route: 048
  9. IBUPROFEN. [Concomitant]
     Active Substance: IBUPROFEN
     Indication: HEADACHE
     Route: 048
     Dates: start: 20201127
  10. AMLODIPINE [Concomitant]
     Active Substance: AMLODIPINE BESYLATE
     Indication: HYPERTENSION
     Route: 048
     Dates: start: 20210121
  11. ONDANSETRON [Concomitant]
     Active Substance: ONDANSETRON
     Indication: NAUSEA
     Route: 048
     Dates: start: 20210818, end: 20210818
  12. METHYLPREDNISOLONE. [Suspect]
     Active Substance: METHYLPREDNISOLONE
     Indication: PREMEDICATION
     Dosage: MOST RECENT DOSE OF STUDY DRUG PRIOR TO SAE ON 02/JUN/2021 (100 MG) AT 10:19 AM
     Route: 042
  13. CHOLECALCIFEROL [Concomitant]
     Active Substance: CHOLECALCIFEROL
     Indication: VITAMIN D DEFICIENCY
     Route: 048
     Dates: start: 20190927
  14. BENADRYL [Concomitant]
     Active Substance: DIPHENHYDRAMINE HYDROCHLORIDE
     Indication: RASH
     Route: 048
     Dates: start: 20201011
  15. DIPHENHYDRAMINE. [Concomitant]
     Active Substance: DIPHENHYDRAMINE
     Route: 048
     Dates: start: 20210602, end: 20210602
  16. IBUPROFEN. [Concomitant]
     Active Substance: IBUPROFEN
     Indication: PAIN
     Route: 048
     Dates: start: 202106
  17. METHYLPREDNISOLONE. [Concomitant]
     Active Substance: METHYLPREDNISOLONE
     Route: 042
     Dates: start: 20210602, end: 20210602
  18. CLEARLAX (UNITED STATES) [Concomitant]
     Indication: CONSTIPATION
     Route: 048
     Dates: start: 20210713, end: 202107
  19. LISINOPRIL. [Concomitant]
     Active Substance: LISINOPRIL
     Indication: HYPERTENSION
     Route: 048
     Dates: start: 20210817
  20. SENNA [Concomitant]
     Active Substance: SENNA LEAF\SENNOSIDES\SENNOSIDES A AND B
     Route: 048
     Dates: start: 20210818, end: 20210818
  21. DIAZEPAM. [Concomitant]
     Active Substance: DIAZEPAM
     Indication: ANXIETY
     Route: 048
     Dates: start: 20201214
  22. SEA BUCKTHORN [Concomitant]
     Indication: CONSTIPATION
     Dates: start: 202106
  23. ACETAMINOPHEN. [Concomitant]
     Active Substance: ACETAMINOPHEN
     Route: 048
     Dates: start: 20210602, end: 20210602
  24. DULCOLAX (BISACODYL) [Concomitant]
     Active Substance: BISACODYL
     Indication: CONSTIPATION
     Dates: start: 202106
  25. GOLYTELY [Concomitant]
     Active Substance: POLYETHYLENE GLYCOL 3350\POTASSIUM CHLORIDE\SODIUM BICARBONATE\SODIUM CHLORIDE\SODIUM SULFATE
     Dosage: 594 OTHER
     Dates: start: 20210819, end: 20210819
  26. ONDANSETRON [Concomitant]
     Active Substance: ONDANSETRON
     Indication: VOMITING
     Route: 048
     Dates: start: 20210818

REACTIONS (3)
  - Pneumonia [Recovered/Resolved]
  - Candida infection [Recovered/Resolved]
  - Gonococcal infection [Recovered/Resolved]

NARRATIVE: CASE EVENT DATE: 202107
